FAERS Safety Report 8548525 (Version 2)
Quarter: 2012Q4

REPORT INFORMATION
  Report Type: 
  Country: US (occurrence: US)
  Receive Date: 20120507
  Receipt Date: 20120903
  Transmission Date: 20130627
  Serious: Yes (Other)
  Sender: FDA-Public Use
  Company Number: US-BAYER-2012-042606

PATIENT
  Age: 19 Year
  Sex: Female
  Weight: 54.42 kg

DRUGS (4)
  1. YASMIN [Suspect]
     Indication: CONTRACEPTION
     Dosage: UNK
     Route: 048
     Dates: start: 20060322, end: 20070816
  2. YASMIN [Suspect]
     Indication: CONTRACEPTION
     Dosage: UNK
     Dates: start: 20081209
  3. YASMIN [Suspect]
     Indication: CONTRACEPTION
  4. YAZ [Suspect]
     Indication: CONTRACEPTION
     Dosage: UNK
     Route: 048

REACTIONS (5)
  - Pulmonary embolism [None]
  - Injury [None]
  - Chest pain [None]
  - Pain [None]
  - Musculoskeletal chest pain [None]
